FAERS Safety Report 5928848-2 (Version None)
Quarter: 2008Q4

REPORT INFORMATION
  Report Type: 
  Country: None (occurrence: None)
  Receive Date: 20081020
  Receipt Date: 20081014
  Transmission Date: 20090506
  Serious: Yes (Death)
  Sender: FDA-Public Use
  Company Number: 2008SP020839

PATIENT
  Age: 42 Year
  Sex: Male

DRUGS (1)
  1. TEMODAL [Suspect]
     Indication: BRAIN NEOPLASM
     Dosage: 100 MG; QD; PO
     Route: 048
     Dates: start: 20080701, end: 20080918

REACTIONS (2)
  - NEOPLASM PROGRESSION [None]
  - PNEUMONIA BACTERIAL [None]
